FAERS Safety Report 6961349-1 (Version None)
Quarter: 2010Q3

REPORT INFORMATION
  Report Type: 
  Country: None (occurrence: None)
  Receive Date: 20100901
  Receipt Date: 20100824
  Transmission Date: 20110219
  Serious: Yes (Hospitalization)
  Sender: FDA-Public Use
  Company Number: B0660852A

PATIENT
  Age: 51 Year
  Sex: Male
  Weight: 62.3 kg

DRUGS (8)
  1. MARAVIROC [Suspect]
     Indication: HIV INFECTION
     Dosage: 150MG PER DAY
     Route: 048
     Dates: start: 20090623
  2. DARUNAVIR [Suspect]
     Indication: HIV INFECTION
     Dosage: 800MG PER DAY
     Route: 048
     Dates: start: 20090728
  3. RITONAVIR [Suspect]
     Indication: HIV INFECTION
     Dosage: 100MG PER DAY
     Route: 048
     Dates: start: 20090623
  4. ASTEPRO [Concomitant]
     Dates: start: 20090515
  5. ACYCLOVIR SODIUM [Concomitant]
     Indication: HERPES VIRUS INFECTION
     Dates: start: 20090423
  6. PROVENTIL [Concomitant]
     Indication: WHEEZING
     Dates: start: 20091007
  7. LEVITRA [Concomitant]
     Dates: start: 20091007
  8. OPTIVAR [Concomitant]
     Dates: start: 20100405

REACTIONS (1)
  - LARGE INTESTINE PERFORATION [None]
